FAERS Safety Report 9715222 (Version 1)
Quarter: 2013Q4

REPORT INFORMATION
  Report Type: Spontaneous
  Country: ES (occurrence: ES)
  Receive Date: 20131126
  Receipt Date: 20131126
  Transmission Date: 20140711
  Serious: Yes (Death)
  Sender: FDA-Public Use
  Company Number: ES-ROCHE-1307294

PATIENT
  Age: 65 Year
  Sex: Female

DRUGS (3)
  1. AVASTIN [Suspect]
     Indication: COLORECTAL CANCER STAGE IV
     Route: 042
     Dates: start: 20131031, end: 20131031
  2. OXALIPLATIN [Suspect]
     Indication: COLORECTAL CANCER STAGE IV
     Route: 042
     Dates: start: 20131031, end: 20131031
  3. VENOFER [Suspect]
     Indication: PRODUCT USED FOR UNKNOWN INDICATION
     Route: 042
     Dates: start: 20131031, end: 20131031

REACTIONS (1)
  - Cardio-respiratory arrest [Fatal]
